FAERS Safety Report 14526394 (Version 5)
Quarter: 2019Q1

REPORT INFORMATION
  Report Type: Spontaneous
  Country: US (occurrence: US)
  Receive Date: 20180213
  Receipt Date: 20190228
  Transmission Date: 20190417
  Serious: Yes (Other)
  Sender: FDA-Public Use
  Company Number: US-DSJP-DSU-2017-147616

PATIENT

DRUGS (1)
  1. BENICAR [Suspect]
     Active Substance: OLMESARTAN MEDOXOMIL
     Indication: HYPERTENSION
     Dosage: 40 MG, QD (IN MORNING)
     Route: 048
     Dates: start: 20100806, end: 20140107

REACTIONS (10)
  - Hiatus hernia [Unknown]
  - Haematemesis [Unknown]
  - Muscle spasms [Recovered/Resolved]
  - Gastrooesophageal reflux disease [Recovering/Resolving]
  - Constipation [Unknown]
  - Sprue-like enteropathy [Recovered/Resolved]
  - Reactive gastropathy [Unknown]
  - Coeliac disease [Recovered/Resolved]
  - Pancreatitis acute [Unknown]
  - Diverticulum intestinal [Unknown]

NARRATIVE: CASE EVENT DATE: 2011
